FAERS Safety Report 4834629-3 (Version None)
Quarter: 2005Q4

REPORT INFORMATION
  Report Type: 
  Country: None (occurrence: None)
  Receive Date: 20051122
  Receipt Date: 20051114
  Transmission Date: 20060501
  Serious: Yes (Other)
  Sender: FDA-Public Use
  Company Number: 2005-04389

PATIENT
  Sex: Female

DRUGS (4)
  1. AUGMENTIN [Suspect]
     Dates: start: 20050627
  2. ACTIGALL [Suspect]
     Dates: start: 20050201, end: 20050801
  3. ANTI INFLAMMATORY DRUG [Concomitant]
     Indication: PAIN
  4. ANTIVIRAL [Concomitant]

REACTIONS (11)
  - ABDOMINAL PAIN UPPER [None]
  - BLOOD BILIRUBIN INCREASED [None]
  - DRUG HYPERSENSITIVITY [None]
  - DYSGEUSIA [None]
  - FEELING ABNORMAL [None]
  - HEPATIC ENZYME INCREASED [None]
  - JAUNDICE [None]
  - MALAISE [None]
  - NAUSEA [None]
  - PRURITUS [None]
  - WHITE BLOOD CELL COUNT INCREASED [None]
